FAERS Safety Report 8352125-6 (Version None)
Quarter: 2012Q2

REPORT INFORMATION
  Report Type: 
  Country: None (occurrence: None)
  Receive Date: 20120511
  Receipt Date: 20120501
  Transmission Date: 20120825
  Serious: Yes (Other)
  Sender: FDA-Public Use
  Company Number: US-JNJFOC-20120404103

PATIENT
  Sex: Female

DRUGS (14)
  1. REMICADE [Suspect]
     Indication: RHEUMATOID ARTHRITIS
     Route: 042
     Dates: start: 20120301
  2. PREMARIN [Concomitant]
     Indication: HORMONE REPLACEMENT THERAPY
     Route: 048
     Dates: start: 19970101
  3. MOBIC [Concomitant]
     Indication: ARTHRALGIA
     Route: 048
     Dates: start: 20100101
  4. ARAVA [Concomitant]
     Dosage: ABOUT 2 MONTHS
     Route: 065
  5. PREDNISONE [Concomitant]
     Route: 065
  6. REMICADE [Suspect]
     Route: 042
  7. NEURONTIN [Concomitant]
     Indication: NERVE INJURY
     Route: 048
     Dates: start: 20100101
  8. TOPROL-XL [Concomitant]
     Indication: HYPERTENSION
     Route: 048
  9. DOXAZOSIN MESYLATE [Concomitant]
     Indication: HYPERTENSION
     Route: 048
  10. AMLODIPINE BESYLATE [Concomitant]
     Indication: HYPERTENSION
     Route: 048
  11. TRAMADOL HYDROCHLORIDE [Concomitant]
     Route: 048
     Dates: start: 20090101
  12. REMICADE [Suspect]
     Route: 042
     Dates: start: 20110201, end: 20120301
  13. VYTORIN [Concomitant]
     Indication: BLOOD CHOLESTEROL INCREASED
     Route: 048
     Dates: start: 20090101
  14. PLAQUENIL [Concomitant]
     Indication: ARTHRITIS
     Route: 048
     Dates: start: 20100101

REACTIONS (8)
  - FALL [None]
  - MORBID THOUGHTS [None]
  - DRUG INEFFECTIVE [None]
  - ARTHRALGIA [None]
  - CARPAL TUNNEL SYNDROME [None]
  - GAIT DISTURBANCE [None]
  - MYALGIA [None]
  - WEIGHT DECREASED [None]
